FAERS Safety Report 7095873-0 (Version None)
Quarter: 2010Q4

REPORT INFORMATION
  Report Type: 
  Country: None (occurrence: None)
  Receive Date: 20101111
  Receipt Date: 20101029
  Transmission Date: 20110411
  Serious: Yes (Other)
  Sender: FDA-Public Use
  Company Number: US-JNJFOC-20101100822

PATIENT
  Sex: Female
  Weight: 62.14 kg

DRUGS (10)
  1. TOPAMAX [Suspect]
     Indication: BINGE EATING
     Route: 048
  2. TOPAMAX [Suspect]
     Dosage: AT BEDTIME
     Route: 048
  3. TOPAMAX [Suspect]
     Indication: BIPOLAR DISORDER
     Dosage: AT BEDTIME
     Route: 048
  4. TOPAMAX [Suspect]
     Route: 048
  5. TOPAMAX [Suspect]
     Indication: MIGRAINE PROPHYLAXIS
     Route: 048
  6. TOPAMAX [Suspect]
     Dosage: AT BEDTIME
     Route: 048
  7. RISPERDAL [Concomitant]
     Indication: BINGE EATING
     Route: 065
  8. RISPERDAL [Concomitant]
     Indication: BIPOLAR DISORDER
     Route: 065
  9. ZOLOFT [Concomitant]
     Indication: BINGE EATING
     Route: 065
  10. ZOLOFT [Concomitant]
     Indication: BIPOLAR DISORDER
     Route: 065

REACTIONS (5)
  - AFFECTIVE DISORDER [None]
  - BINGE EATING [None]
  - BIPOLAR DISORDER [None]
  - DISTURBANCE IN ATTENTION [None]
  - HYPOHIDROSIS [None]
